FAERS Safety Report 4745627-2 (Version None)
Quarter: 2005Q3

REPORT INFORMATION
  Report Type: 
  Country: None (occurrence: None)
  Receive Date: 20050815
  Receipt Date: 20050726
  Transmission Date: 20060218
  Serious: Yes (Other)
  Sender: FDA-Public Use
  Company Number: 216648

PATIENT
  Age: 57 Year
  Sex: Male

DRUGS (2)
  1. AVASTIN [Suspect]
     Indication: COLORECTAL CANCER METASTATIC
     Dosage: 390 MG, Q2W, INTRAVENOUS
     Route: 042
     Dates: start: 20050218
  2. DOMPERIDONE (DOMPERIDONE) [Concomitant]

REACTIONS (1)
  - HYPOPHOSPHATAEMIA [None]
